FAERS Safety Report 6413148-7 (Version None)
Quarter: 2009Q4

REPORT INFORMATION
  Report Type: 
  Country: None (occurrence: None)
  Receive Date: 20091022
  Receipt Date: 20091022
  Transmission Date: 20100525
  Serious: Yes (Hospitalization)
  Sender: FDA-Public Use
  Company Number: None

PATIENT
  Age: 60 Year
  Sex: Male

DRUGS (1)
  1. TEMAZEPAM [Suspect]
     Dates: start: 20090818

REACTIONS (4)
  - NAUSEA [None]
  - RESPIRATORY ACIDOSIS [None]
  - SEDATION [None]
  - VOMITING [None]
